FAERS Safety Report 6732039-5 (Version None)
Quarter: 2010Q2

REPORT INFORMATION
  Report Type: 
  Country: None (occurrence: None)
  Receive Date: 20100519
  Receipt Date: 20100507
  Transmission Date: 20101027
  Serious: Yes (Other)
  Sender: FDA-Public Use
  Company Number: PHHY2010US29948

PATIENT
  Sex: Female
  Weight: 47.166 kg

DRUGS (1)
  1. EXJADE [Suspect]
     Dosage: 1000 MG (TWICE A DAY)
     Route: 048
     Dates: start: 20070530

REACTIONS (1)
  - NEUROPATHY PERIPHERAL [None]
